FAERS Safety Report 5188905-8 (Version None)
Quarter: 2006Q4

REPORT INFORMATION
  Report Type: 
  Country: None (occurrence: None)
  Receive Date: 20061215
  Receipt Date: 20061201
  Transmission Date: 20070319
  Serious: Yes (Hospitalization)
  Sender: FDA-Public Use
  Company Number: 233730

PATIENT
  Age: 50 Year

DRUGS (5)
  1. AVASTIN [Suspect]
     Indication: COLORECTAL CANCER
     Dosage: 5 MG/KG, Q2W, INTRAVENOUS
     Route: 042
     Dates: start: 20060724
  2. ERBITUX [Suspect]
     Indication: COLORECTAL CANCER
     Dosage: 250 MG/M2, 1/WEEK, INTRAVENOUS
     Route: 042
     Dates: start: 20060724
  3. OXALIPLATIN [Suspect]
     Indication: COLORECTAL CANCER
     Dosage: 85 MG/M2, Q2W, INTRAVENOUS
     Route: 042
     Dates: start: 20060724
  4. LEUCOVORIN CALCIUM [Suspect]
     Indication: COLORECTAL CANCER
     Dosage: 400 MG/M2, Q2W, INTRAVENOUS
     Route: 042
     Dates: start: 20060724
  5. FLUOROURACIL [Suspect]
     Indication: COLORECTAL CANCER
     Dosage: 400 MG/M2, Q2W, INTRAVENOUS
     Route: 042
     Dates: start: 20060724

REACTIONS (5)
  - ANAL INFECTION [None]
  - BACTERIAL INFECTION [None]
  - NEUTROPHIL COUNT ABNORMAL [None]
  - PERIANAL ABSCESS [None]
  - STREPTOCOCCAL INFECTION [None]
